FAERS Safety Report 8060433-1 (Version None)
Quarter: 2012Q1

REPORT INFORMATION
  Report Type: 
  Country: None (occurrence: None)
  Receive Date: 20120120
  Receipt Date: 20110811
  Transmission Date: 20120608
  Serious: Yes (Other)
  Sender: FDA-Public Use
  Company Number: JP-GLAXOSMITHKLINE-B0739493A

PATIENT
  Sex: Male

DRUGS (2)
  1. FLUTICASONE PROPIONATE/SALMETEROL [Suspect]
     Indication: PRODUCT USED FOR UNKNOWN INDICATION
     Dosage: 500MCG PER DAY
     Route: 055
     Dates: start: 20100929, end: 20110804
  2. MONTELUKAST SODIUM [Concomitant]
     Route: 048
     Dates: start: 20100929

REACTIONS (3)
  - ACTH STIMULATION TEST ABNORMAL [None]
  - ADRENAL INSUFFICIENCY [None]
  - CORTISOL FREE URINE DECREASED [None]
